FAERS Safety Report 14225366 (Version 1)
Quarter: 2017Q4

REPORT INFORMATION
  Report Type: Spontaneous
  Country: US (occurrence: US)
  Receive Date: 20171127
  Receipt Date: 20171127
  Transmission Date: 20180321
  Serious: No
  Sender: FDA-Public Use
  Company Number: US-PFIZER INC-2017508512

PATIENT
  Age: 72 Year

DRUGS (5)
  1. AMOXICILLIN AND CLAVULANATE POTASSIUM [Suspect]
     Active Substance: AMOXICILLIN\CLAVULANATE POTASSIUM
     Dosage: UNK
  2. LOSARTAN. [Suspect]
     Active Substance: LOSARTAN
     Dosage: UNK
  3. OXAPROZIN. [Suspect]
     Active Substance: OXAPROZIN
     Dosage: UNK
  4. DAPSONE. [Suspect]
     Active Substance: DAPSONE
     Dosage: UNK
  5. LEVOFLOXACIN. [Suspect]
     Active Substance: LEVOFLOXACIN
     Dosage: UNK

REACTIONS (1)
  - Drug hypersensitivity [Unknown]
